FAERS Safety Report 8614839-X (Version None)
Quarter: 2012Q3

REPORT INFORMATION
  Report Type: 
  Country: None (occurrence: None)
  Receive Date: 20120823
  Receipt Date: 20120821
  Transmission Date: 20120928
  Serious: Yes (Other)
  Sender: FDA-Public Use
  Company Number: JP-PFIZER INC-2012193661

PATIENT
  Age: 82 Year
  Sex: Male

DRUGS (3)
  1. DIOVAN [Suspect]
     Indication: HYPERTENSION
     Dosage: 40 MG DAILY
     Route: 048
     Dates: start: 20120425, end: 20120718
  2. NORVASC [Suspect]
     Indication: HYPERTENSION
     Dosage: 5 MG, DAY
     Route: 048
     Dates: start: 20101112, end: 20120705
  3. RABEPRAZOLE SODIUM [Suspect]
     Indication: GASTROOESOPHAGEAL REFLUX DISEASE
     Dosage: 10 MG DAILY
     Route: 048
     Dates: start: 20111222, end: 20120718

REACTIONS (3)
  - HEPATIC FUNCTION ABNORMAL [None]
  - BLOOD CREATINE PHOSPHOKINASE INCREASED [None]
  - RENAL IMPAIRMENT [None]
